FAERS Safety Report 13694672 (Version 2)
Quarter: 2017Q3

REPORT INFORMATION
  Report Type: Spontaneous
  Country: US (occurrence: US)
  Receive Date: 20170627
  Receipt Date: 20170802
  Transmission Date: 20171127
  Serious: Yes (Death, Other)
  Sender: FDA-Public Use
  Company Number: PHEH2017US019500

PATIENT
  Age: 98 Year
  Sex: Female

DRUGS (1)
  1. ENTRESTO [Suspect]
     Active Substance: SACUBITRIL\VALSARTAN
     Indication: CARDIAC FAILURE CONGESTIVE
     Dosage: 50 MG, BID
     Route: 048
     Dates: start: 20170527

REACTIONS (3)
  - Atrial fibrillation [Unknown]
  - Gastrointestinal haemorrhage [Fatal]
  - Anticoagulation drug level increased [Fatal]

NARRATIVE: CASE EVENT DATE: 20170619
